FAERS Safety Report 7516517-7 (Version None)
Quarter: 2011Q2

REPORT INFORMATION
  Report Type: 
  Country: None (occurrence: None)
  Receive Date: 20110601
  Receipt Date: 20110519
  Transmission Date: 20111010
  Serious: Yes (Congenital Anomaly)
  Sender: FDA-Public Use
  Company Number: A0929582A

PATIENT
  Sex: Female

DRUGS (4)
  1. PAXIL [Suspect]
     Route: 064
  2. TOBACCO [Concomitant]
     Route: 064
  3. NICOTINE PATCH [Concomitant]
     Route: 064
  4. XANAX [Concomitant]
     Indication: ANXIETY
     Route: 064

REACTIONS (4)
  - RIGHT AORTIC ARCH [None]
  - CONVULSION [None]
  - TORTICOLLIS [None]
  - DRUG EXPOSURE DURING PREGNANCY [None]
